FAERS Safety Report 22838964 (Version 3)
Quarter: 2023Q4

REPORT INFORMATION
  Report Type: Spontaneous
  Country: US (occurrence: US)
  Receive Date: 20230818
  Receipt Date: 20231205
  Transmission Date: 20240109
  Serious: Yes (Other)
  Sender: FDA-Public Use
  Company Number: US-PFIZER INC-PV202300142116

PATIENT
  Age: 78 Year
  Sex: Female

DRUGS (3)
  1. IBRANCE [Suspect]
     Active Substance: PALBOCICLIB
     Indication: Breast cancer female
     Dosage: UNK
  2. IBRANCE [Suspect]
     Active Substance: PALBOCICLIB
     Dosage: 100 MG, CYCLIC, [TAKE 1 DAILY FOR 21 DAYS AND THEN 7 DAYS OFF]
     Route: 048
     Dates: start: 20221201
  3. IBRANCE [Suspect]
     Active Substance: PALBOCICLIB
     Dosage: 100 MG, CYCLIC (TAKE 1 TAB DAILY BY MOUTH FOR 21 DAYS FOLLOWED BY 7 DAYS ODD THEN REPEAT)
     Route: 048

REACTIONS (1)
  - Neutropenia [Unknown]
